FAERS Safety Report 10434296 (Version 1)
Quarter: 2014Q3

REPORT INFORMATION
  Report Type: Spontaneous
  Country: US (occurrence: US)
  Receive Date: 20140905
  Receipt Date: 20140905
  Transmission Date: 20150326
  Serious: Yes (Other)
  Sender: FDA-Public Use
  Company Number: US-BAXTER-2014BAX052482

PATIENT
  Age: 4 Month
  Sex: Female

DRUGS (7)
  1. VINCRISTINE [Suspect]
     Active Substance: VINCRISTINE
     Indication: BENIGN VASCULAR NEOPLASM
     Route: 065
  2. CYCLOPHOSPHAMIDE FOR INJECTION, USP [Suspect]
     Active Substance: CYCLOPHOSPHAMIDE
     Indication: BENIGN VASCULAR NEOPLASM
     Route: 065
  3. GAMMAGARD LIQUID [Suspect]
     Active Substance: HUMAN IMMUNOGLOBULIN G
     Indication: IMMUNE THROMBOCYTOPENIC PURPURA
     Route: 042
  4. CYCLOPHOSPHAMIDE FOR INJECTION, USP [Suspect]
     Active Substance: CYCLOPHOSPHAMIDE
     Indication: HAEMANGIOMA-THROMBOCYTOPENIA SYNDROME
  5. INTERFERON-IIA [Suspect]
     Active Substance: INTERFERON ALFA-2A
     Indication: BENIGN VASCULAR NEOPLASM
     Route: 065
  6. VINCRISTINE [Suspect]
     Active Substance: VINCRISTINE
     Indication: HAEMANGIOMA-THROMBOCYTOPENIA SYNDROME
  7. INTERFERON-IIA [Suspect]
     Active Substance: INTERFERON ALFA-2A
     Indication: HAEMANGIOMA-THROMBOCYTOPENIA SYNDROME

REACTIONS (3)
  - Disease recurrence [None]
  - Drug ineffective [None]
  - Haemangioma [Not Recovered/Not Resolved]
